FAERS Safety Report 25258746 (Version 1)
Quarter: 2025Q2

REPORT INFORMATION
  Report Type: Spontaneous
  Country: US (occurrence: US)
  Receive Date: 20250501
  Receipt Date: 20250501
  Transmission Date: 20250717
  Serious: No
  Sender: UNITED EXCHANGE
  Company Number: US-United Exchange Corporation-2175928

PATIENT
  Sex: Female

DRUGS (2)
  1. CVS CAPSAICIN [Suspect]
     Active Substance: CAPSAICIN
     Indication: Pain
     Dates: start: 20241213, end: 20241213
  2. CVS CAPSAICIN [Suspect]
     Active Substance: CAPSAICIN
     Indication: Arthritis

REACTIONS (7)
  - Thermal burn [Unknown]
  - Rash [Unknown]
  - Pruritus [Unknown]
  - Infection [Unknown]
  - Skin irritation [Unknown]
  - Erythema [Unknown]
  - Pain [Unknown]

NARRATIVE: CASE EVENT DATE: 20241213
